FAERS Safety Report 7095358-1 (Version None)
Quarter: 2010Q4

REPORT INFORMATION
  Report Type: 
  Country: None (occurrence: None)
  Receive Date: 20101111
  Receipt Date: 20101102
  Transmission Date: 20110411
  Serious: Yes (Death)
  Sender: FDA-Public Use
  Company Number: CH-US-EMD SERONO, INC.-7019187

PATIENT
  Sex: Female
  Weight: 59 kg

DRUGS (8)
  1. PERGOVERIS [Suspect]
     Indication: OVULATION INDUCTION
     Dosage: 3 AMPULES PER DAY
  2. PERGOVERIS [Suspect]
     Dosage: 3 AMPULES PER DAY
  3. PERGOVERIS [Suspect]
     Dosage: 3 AMPULES PER DAY
  4. OVITRELLE [Suspect]
     Indication: PRODUCT USED FOR UNKNOWN INDICATION
     Dosage: 3 AMPULES PER DAY (TOTAL)
  5. 5 STIMULATIONS FOR IVF - PRODUCT UNKNOWN [Suspect]
     Indication: IN VITRO FERTILISATION
     Route: 058
  6. CRINONE [Concomitant]
     Route: 067
     Dates: start: 20091101
  7. CRINONE [Concomitant]
     Route: 067
     Dates: start: 20100301
  8. CRINONE [Concomitant]
     Route: 067
     Dates: start: 20100601

REACTIONS (1)
  - MALIGNANT MELANOMA [None]
